FAERS Safety Report 9502426 (Version 1)
Quarter: 2013Q3

REPORT INFORMATION
  Report Type: Spontaneous
  Country: CA (occurrence: CA)
  Receive Date: 20130906
  Receipt Date: 20130906
  Transmission Date: 20140515
  Serious: Yes (Death)
  Sender: FDA-Public Use
  Company Number: CA-ROCHE-1271080

PATIENT
  Age: 76 Year
  Sex: Male
  Weight: 98 kg

DRUGS (17)
  1. CEFTRIAXONE SODIUM [Suspect]
     Indication: PRODUCT USED FOR UNKNOWN INDICATION
     Dosage: THERAPY DURATION: 3.0 DAYS
     Route: 042
  2. CIPROFLOXACIN [Suspect]
     Indication: PRODUCT USED FOR UNKNOWN INDICATION
     Dosage: THERAPY DURATION: 3.0 DAYS
     Route: 042
  3. VEPESID [Suspect]
     Indication: PRODUCT USED FOR UNKNOWN INDICATION
     Dosage: THERAPY DURATION: 3.0 DAYS
     Route: 042
  4. ACETAMINOPHEN [Concomitant]
     Route: 065
  5. ARTHROTEC [Concomitant]
     Route: 065
  6. ASA [Concomitant]
     Route: 065
  7. CISPLATIN [Concomitant]
     Route: 065
  8. FLUTICASONE [Concomitant]
     Route: 065
  9. IPRATROPIUM [Concomitant]
     Route: 065
  10. LANSOPRAZOLE [Concomitant]
     Route: 065
  11. LIPITOR [Concomitant]
     Route: 065
  12. METOCLOPRAMIDE [Concomitant]
     Route: 065
  13. NORVASC [Concomitant]
     Route: 065
  14. ONDANSETRON [Concomitant]
     Route: 065
  15. SALBUTAMOL [Concomitant]
     Route: 065
  16. DEXAMETHASONE [Concomitant]
     Route: 065
  17. RABEPRAZOLE [Concomitant]

REACTIONS (4)
  - Blister [Fatal]
  - Pruritus [Fatal]
  - Rash macular [Fatal]
  - Toxic epidermal necrolysis [Fatal]
